FAERS Safety Report 19522770 (Version 1)
Quarter: 2021Q3

REPORT INFORMATION
  Report Type: Report from Study
  Country: IT (occurrence: IT)
  Receive Date: 20210713
  Receipt Date: 20210713
  Transmission Date: 20211014
  Serious: Yes (Other)
  Sender: FDA-Public Use
  Company Number: IT-CELLTRION INC.-2021IT009245

PATIENT

DRUGS (5)
  1. PACLITAXEL TEVA [Suspect]
     Active Substance: PACLITAXEL
     Indication: BREAST CANCER
     Dosage: 125 MG, CYCLIC
     Route: 042
     Dates: start: 20210218
  2. SOLDESAM [Concomitant]
     Active Substance: DEXAMETHASONE
     Indication: PREMEDICATION
     Dosage: 8 MG
     Route: 042
  3. LIMICAN [Suspect]
     Active Substance: ALIZAPRIDE HYDROCHLORIDE
     Indication: PREMEDICATION
     Dosage: 100 MG
     Route: 042
  4. TRASTUZUMAB (UNKNOWN) [Suspect]
     Active Substance: TRASTUZUMAB
     Indication: BREAST CANCER
     Dosage: 116 MG, CYCLIC
     Route: 042
     Dates: start: 20210218
  5. TRIMETON [Concomitant]
     Active Substance: CHLORPHENIRAMINE MALEATE
     Indication: PREMEDICATION
     Dosage: 10 MG
     Route: 042

REACTIONS (3)
  - Transaminases increased [Unknown]
  - Pyrexia [Unknown]
  - Mastitis [Unknown]

NARRATIVE: CASE EVENT DATE: 20210415
